FAERS Safety Report 7598739-2 (Version None)
Quarter: 2011Q3

REPORT INFORMATION
  Report Type: 
  Country: None (occurrence: None)
  Receive Date: 20110711
  Receipt Date: 20110630
  Transmission Date: 20111222
  Serious: No
  Sender: FDA-Public Use
  Company Number: US-BIOGENIDEC-2010BI021940

PATIENT
  Sex: Male

DRUGS (1)
  1. TYSABRI [Suspect]
     Indication: MULTIPLE SCLEROSIS
     Route: 042
     Dates: start: 20080508

REACTIONS (8)
  - VISUAL IMPAIRMENT [None]
  - OPTIC NEURITIS [None]
  - ASTHENIA [None]
  - TREMOR [None]
  - CONFUSIONAL STATE [None]
  - DYSARTHRIA [None]
  - BALANCE DISORDER [None]
  - COGNITIVE DISORDER [None]
